FAERS Safety Report 13738528 (Version 1)
Quarter: 2017Q3

REPORT INFORMATION
  Report Type: Spontaneous
  Country: US (occurrence: US)
  Receive Date: 20170710
  Receipt Date: 20170710
  Transmission Date: 20171127
  Serious: Yes (Other)
  Sender: FDA-Public Use
  Company Number: US-SAOL THERAPEUTICS-2017SAO00140

PATIENT
  Age: 44 Year
  Sex: Female

DRUGS (9)
  1. COMPOUNDED BACLOFEN [Suspect]
     Active Substance: BACLOFEN
     Indication: POST LAMINECTOMY SYNDROME
     Dosage: 1152.1 ?G, \DAY
     Route: 037
     Dates: start: 20140724, end: 20140725
  2. COMPOUNDED BACLOFEN [Suspect]
     Active Substance: BACLOFEN
     Indication: PAIN
     Dosage: 921.1 ?G, \DAY
     Route: 037
     Dates: start: 20140725
  3. BUPIVACAINE. [Suspect]
     Active Substance: BUPIVACAINE
     Dosage: 5.761 MG, \DAY
     Route: 037
     Dates: start: 20140724, end: 20140725
  4. COMPOUNDED BACLOFEN [Suspect]
     Active Substance: BACLOFEN
     Dosage: 1150.9 ?G, \DAY
     Route: 037
     Dates: start: 20140602
  5. BUPIVACAINE. [Suspect]
     Active Substance: BUPIVACAINE
     Dosage: 4.606 MG, \DAY
     Route: 037
     Dates: start: 20140725
  6. BUPIVACAINE. [Suspect]
     Active Substance: BUPIVACAINE
     Dosage: 5.754 MG, \DAY
     Route: 037
     Dates: start: 20140602
  7. FENTANYL. [Suspect]
     Active Substance: FENTANYL
     Dosage: 172.82 ?G, \DAY
     Route: 037
     Dates: start: 20140724, end: 20140725
  8. FENTANYL. [Suspect]
     Active Substance: FENTANYL
     Dosage: 138.17 ?G, \DAY
     Route: 037
     Dates: start: 20140725
  9. FENTANYL. [Suspect]
     Active Substance: FENTANYL
     Dosage: 172.63 ?G, \DAY
     Route: 037

REACTIONS (4)
  - Therapeutic response decreased [Unknown]
  - Off label use [Unknown]
  - Drug withdrawal syndrome [Unknown]
  - Device failure [Recovered/Resolved]

NARRATIVE: CASE EVENT DATE: 20140524
